FAERS Safety Report 4511199-0 (Version None)
Quarter: 2004Q4

REPORT INFORMATION
  Report Type: 
  Country: None (occurrence: None)
  Receive Date: 20041122
  Receipt Date: 20041122
  Transmission Date: 20050328
  Serious: No
  Sender: FDA-Public Use
  Company Number: None

PATIENT
  Age: 79 Year
  Sex: Male

DRUGS (5)
  1. BEXTRA [Suspect]
     Indication: ARTHRITIS
     Dosage: 1 TABLET DAILY BY MOUTH
     Route: 048
     Dates: start: 20031010, end: 20041005
  2. DARVOCET-N 100 [Concomitant]
  3. METFORMIN HCL [Concomitant]
  4. CYCLOBENZAPRINE [Concomitant]
  5. GLIPIZIDE [Concomitant]

REACTIONS (1)
  - CHEST PAIN [None]
